FAERS Safety Report 13107680 (Version 1)
Quarter: 2017Q1

REPORT INFORMATION
  Report Type: Report from Study
  Country: TR (occurrence: TR)
  Receive Date: 20170112
  Receipt Date: 20170112
  Transmission Date: 20170428
  Serious: Yes (Other)
  Sender: FDA-Public Use
  Company Number: TR-ROCHE-1877331

PATIENT
  Age: 55 Year
  Sex: Male

DRUGS (8)
  1. ALTEPLASE [Suspect]
     Active Substance: ALTEPLASE
     Route: 041
  2. ACETYLSALICYLIC ACID [Concomitant]
     Active Substance: ASPIRIN
     Route: 065
  3. WARFARIN [Concomitant]
     Active Substance: WARFARIN
  4. ALTEPLASE [Suspect]
     Active Substance: ALTEPLASE
     Indication: THROMBOSIS
     Route: 041
  5. DIPYRIDAMOLE. [Concomitant]
     Active Substance: DIPYRIDAMOLE
     Route: 065
  6. ALTEPLASE [Suspect]
     Active Substance: ALTEPLASE
     Dosage: 1.5 MG PER MINUTE OVER A PERIOD OF 30 MINUTES
     Route: 016
  7. HEPARIN [Concomitant]
     Active Substance: HEPARIN SODIUM
     Indication: ARTIFICIAL HEART IMPLANT
     Route: 042
  8. ALTEPLASE [Suspect]
     Active Substance: ALTEPLASE
     Indication: ARTIFICIAL HEART IMPLANT
     Route: 040

REACTIONS (1)
  - Thrombosis [Recovered/Resolved]
